FAERS Safety Report 8245613-4 (Version None)
Quarter: 2012Q1

REPORT INFORMATION
  Report Type: 
  Country: None (occurrence: None)
  Receive Date: 20120330
  Receipt Date: 20120322
  Transmission Date: 20120608
  Serious: Yes (Hospitalization)
  Sender: FDA-Public Use
  Company Number: US-BIOGENIDEC-2012BI008655

PATIENT
  Age: 54 Year
  Sex: Female

DRUGS (1)
  1. TYSABRI [Suspect]
     Indication: MULTIPLE SCLEROSIS
     Route: 042
     Dates: start: 20110106

REACTIONS (5)
  - FATIGUE [None]
  - UPPER RESPIRATORY TRACT CONGESTION [None]
  - HYPERTENSION [None]
  - HYPOAESTHESIA [None]
  - ESCHERICHIA URINARY TRACT INFECTION [None]
